FAERS Safety Report 25106575 (Version 1)
Quarter: 2025Q1

REPORT INFORMATION
  Report Type: Spontaneous
  Country: DE (occurrence: DE)
  Receive Date: 20250321
  Receipt Date: 20250321
  Transmission Date: 20250409
  Serious: Yes (Other)
  Sender: GLAXOSMITHKLINE
  Company Number: DE-GSKCCFEMEA-Case-02266836_AE-95204

PATIENT

DRUGS (5)
  1. FLUTICASONE PROPIONATE [Interacting]
     Active Substance: FLUTICASONE PROPIONATE
     Indication: Product used for unknown indication
  2. FLUTICASONE PROPIONATE\SALMETEROL XINAFOATE [Interacting]
     Active Substance: FLUTICASONE PROPIONATE\SALMETEROL XINAFOATE
     Indication: Asthma
  3. ALBUTEROL [Interacting]
     Active Substance: ALBUTEROL
     Indication: Product used for unknown indication
  4. COVID-19 VACCINE NOS [Interacting]
     Active Substance: COVID-19 VACCINE
     Indication: Prophylaxis
  5. CORTISONE [Interacting]
     Active Substance: CORTISONE
     Indication: Product used for unknown indication

REACTIONS (28)
  - Heavy menstrual bleeding [Unknown]
  - Pneumonitis [Unknown]
  - Deafness [Recovering/Resolving]
  - Drug interaction [Unknown]
  - Depression [Unknown]
  - Epstein-Barr virus infection [Unknown]
  - Asthma [Unknown]
  - Pain in extremity [Unknown]
  - Arthralgia [Unknown]
  - Eructation [Unknown]
  - Endocrine disorder [Unknown]
  - Parosmia [Unknown]
  - Post-acute COVID-19 syndrome [Unknown]
  - Ear inflammation [Recovering/Resolving]
  - Temperature intolerance [Unknown]
  - Withdrawal syndrome [Unknown]
  - Smoke sensitivity [Unknown]
  - Inflammation [Unknown]
  - Viral infection [Unknown]
  - Drug intolerance [Unknown]
  - Sensitivity to weather change [Unknown]
  - Premenstrual syndrome [Unknown]
  - Infection [Unknown]
  - Painful respiration [Unknown]
  - Hormone level abnormal [Unknown]
  - Nasal inflammation [Unknown]
  - Product dose omission in error [Unknown]
  - Drug ineffective [Unknown]
